FAERS Safety Report 11319217 (Version 1)
Quarter: 2015Q3

REPORT INFORMATION
  Report Type: Spontaneous
  Country: US (occurrence: None)
  Receive Date: 20150728
  Receipt Date: 20150728
  Transmission Date: 20151125
  Serious: Yes (Hospitalization)
  Sender: FDA-Public Use
  Company Number: None

PATIENT
  Age: 20 Year
  Sex: Male
  Weight: 112 kg

DRUGS (6)
  1. DAUNORUBICIN [Suspect]
     Active Substance: DAUNORUBICIN
  2. VINCRISTINE SULFATE. [Concomitant]
     Active Substance: VINCRISTINE SULFATE
     Dates: end: 20150702
  3. METHOTREXATE [Suspect]
     Active Substance: METHOTREXATE
     Dates: end: 20150626
  4. ONCASPAR [Suspect]
     Active Substance: PEGASPARGASE
     Dates: end: 20150623
  5. CYTARABINE. [Suspect]
     Active Substance: CYTARABINE
     Dates: end: 20150619
  6. PREDNISONE. [Suspect]
     Active Substance: PREDNISONE
     Dates: end: 20150630

REACTIONS (6)
  - Septic shock [None]
  - Lactic acidosis [None]
  - Dyspnoea [None]
  - Pulseless electrical activity [None]
  - Multi-organ failure [None]
  - Fungal sepsis [None]

NARRATIVE: CASE EVENT DATE: 20150727
